FAERS Safety Report 9517209 (Version 1)
Quarter: 2013Q1

REPORT INFORMATION
  Report Type: Spontaneous
  Country: US (occurrence: None)
  Receive Date: 20130305
  Receipt Date: 20130305
  Transmission Date: 20140127
  Serious: Yes (Other)
  Sender: FDA-Public Use
  Company Number: 163-21880-12113549

PATIENT
  Age: 55 Year
  Sex: Female
  Weight: 51.71 kg

DRUGS (8)
  1. REVLIMID [Suspect]
     Indication: PLASMA CELL MYELOMA
     Route: 048
     Dates: start: 20121023, end: 20121031
  2. BORTEZOMIB [Concomitant]
  3. DEXAMETHASONE [Concomitant]
  4. ALENDRONATE (ALENDRONATE SODIUM) [Concomitant]
  5. FOSAMAX (ALENDRONATE SODIUM) [Concomitant]
  6. MULTIVITAMINS [Concomitant]
  7. ACYCLOVIR [Concomitant]
  8. DIFLUCAN (FLUCONAZOLE) [Concomitant]

REACTIONS (1)
  - Hypoaesthesia [None]
